FAERS Safety Report 10575766 (Version 1)
Quarter: 2014Q4

REPORT INFORMATION
  Report Type: Spontaneous
  Country: US (occurrence: None)
  Receive Date: 20141110
  Receipt Date: 20141110
  Transmission Date: 20150529
  Serious: Yes (Life-Threatening, Other)
  Sender: FDA-Public Use
  Company Number: None

PATIENT
  Age: 60 Year
  Sex: Female
  Weight: 66.95 kg

DRUGS (3)
  1. OXYBUTYNIN [Concomitant]
     Active Substance: OXYBUTYNIN
  2. PRILOSEC [Concomitant]
     Active Substance: OMEPRAZOLE MAGNESIUM
  3. ESCITALOPRAM [Suspect]
     Active Substance: ESCITALOPRAM OXALATE
     Indication: ANXIETY
     Dosage: BY MOUTH AT BEDTIME
     Route: 048
     Dates: start: 20141023

REACTIONS (5)
  - Burning sensation [None]
  - Dizziness [None]
  - Hyperhidrosis [None]
  - Nausea [None]
  - Dysstasia [None]

NARRATIVE: CASE EVENT DATE: 20141024
